FAERS Safety Report 20842059 (Version 1)
Quarter: 2022Q2

REPORT INFORMATION
  Report Type: Spontaneous
  Country: US (occurrence: AU)
  Receive Date: 20220518
  Receipt Date: 20220518
  Transmission Date: 20220720
  Serious: No
  Sender: FDA-Public Use
  Company Number: US-BION-009682

PATIENT

DRUGS (1)
  1. IBUPROFEN [Suspect]
     Active Substance: IBUPROFEN
     Indication: Headache
     Dosage: STRENGTH-200 MG SOFTGELS- 20 CT, 80 CT, 160 CT, 240 CT, 300 CT

REACTIONS (2)
  - Product odour abnormal [Unknown]
  - Retching [Unknown]
